FAERS Safety Report 6091647-8 (Version None)
Quarter: 2009Q1

REPORT INFORMATION
  Report Type: 
  Country: None (occurrence: None)
  Receive Date: 20090225
  Receipt Date: 20080313
  Transmission Date: 20090719
  Serious: No
  Sender: FDA-Public Use
  Company Number: A0716737A

PATIENT
  Age: 57 Year
  Sex: Male

DRUGS (1)
  1. VALTREX [Suspect]
     Route: 048
     Dates: start: 19900101

REACTIONS (1)
  - HERPES VIRUS INFECTION [None]
